FAERS Safety Report 24419265 (Version 2)
Quarter: 2024Q4

REPORT INFORMATION
  Report Type: Report from Study
  Country: US (occurrence: US)
  Receive Date: 20241009
  Receipt Date: 20241018
  Transmission Date: 20250114
  Serious: No
  Sender: ROCHE
  Company Number: US-ROCHE-3495624

PATIENT
  Age: 41 Year
  Sex: Male

DRUGS (6)
  1. CATHFLO ACTIVASE [Suspect]
     Active Substance: ALTEPLASE
     Indication: Device related thrombosis
     Dosage: SUBSEQUENT DOSES : 29/DEC/2023, 30/DEC/2023, 31/DEC/2023
     Route: 065
  2. CATHFLO ACTIVASE [Suspect]
     Active Substance: ALTEPLASE
     Indication: Thrombosis in device
  3. CATHFLO ACTIVASE [Suspect]
     Active Substance: ALTEPLASE
     Indication: Graft thrombosis
  4. PULMOZYME [Suspect]
     Active Substance: DORNASE ALFA
     Indication: Device related thrombosis
     Route: 065
  5. PULMOZYME [Suspect]
     Active Substance: DORNASE ALFA
     Indication: Thrombosis in device
  6. PULMOZYME [Suspect]
     Active Substance: DORNASE ALFA
     Indication: Graft thrombosis

REACTIONS (2)
  - Off label use [Unknown]
  - No adverse event [Unknown]
